FAERS Safety Report 5225294-4 (Version None)
Quarter: 2007Q1

REPORT INFORMATION
  Report Type: 
  Country: None (occurrence: None)
  Receive Date: 20070131
  Receipt Date: 20070118
  Transmission Date: 20070707
  Serious: Yes (Hospitalization)
  Sender: FDA-Public Use
  Company Number: 2007CG00132

PATIENT
  Age: 82 Year
  Sex: Male

DRUGS (2)
  1. NEXIUM [Suspect]
     Route: 048
     Dates: start: 20061016, end: 20061124
  2. ZYLORIC [Suspect]
     Route: 048
     Dates: end: 20061124

REACTIONS (1)
  - NEUTROPENIA [None]
